FAERS Safety Report 6267271-0 (Version None)
Quarter: 2009Q3

REPORT INFORMATION
  Report Type: 
  Country: None (occurrence: None)
  Receive Date: 20090714
  Receipt Date: 20090702
  Transmission Date: 20100115
  Serious: Yes (Death, Other)
  Sender: FDA-Public Use
  Company Number: US-PFIZER INC-2009236292

PATIENT
  Sex: Female

DRUGS (9)
  1. PROVERA [Suspect]
     Indication: HORMONE REPLACEMENT THERAPY
     Dosage: 10 MG, UNK
     Route: 048
     Dates: start: 19811001, end: 19880601
  2. PROVERA [Suspect]
     Dosage: 2.5 MG, UNK
     Route: 048
     Dates: start: 19891001, end: 19930601
  3. PROVERA [Suspect]
     Dosage: 5 MG, UNK
     Route: 048
     Dates: start: 19930601, end: 19950101
  4. PREMARIN [Suspect]
     Indication: HORMONE REPLACEMENT THERAPY
     Dosage: 0.625 MG, UNK
     Route: 065
     Dates: start: 19801001, end: 19830301
  5. PREMARIN [Suspect]
     Dosage: 0.625 MG, UNK
     Route: 065
     Dates: start: 19930601, end: 19950101
  6. PREMARIN [Suspect]
     Dosage: 0.3 MG, UNK
     Dates: start: 19830301, end: 19930601
  7. PREMARIN [Suspect]
     Dosage: 0.3 MG, UNK
     Route: 065
     Dates: start: 19950101, end: 19960901
  8. AYGESTIN [Suspect]
     Indication: HORMONE REPLACEMENT THERAPY
     Dosage: 5 MG, UNK
     Route: 065
     Dates: start: 19880601, end: 19891001
  9. PREMPRO [Suspect]
     Indication: HORMONE REPLACEMENT THERAPY
     Dosage: 0.625/2.5MG
     Route: 065
     Dates: start: 19960901, end: 19990101

REACTIONS (2)
  - BREAST CANCER FEMALE [None]
  - LUNG NEOPLASM MALIGNANT [None]
